FAERS Safety Report 25829071 (Version 4)
Quarter: 2025Q4

REPORT INFORMATION
  Report Type: Other
  Country: US (occurrence: US)
  Receive Date: 20250922
  Receipt Date: 20251104
  Transmission Date: 20260118
  Serious: Yes (Hospitalization, Other)
  Sender: TRAVERE THERAPEUTICS
  Company Number: US-TRAVERE-2025TVT01320

PATIENT
  Age: 78 Year
  Sex: Male

DRUGS (10)
  1. FILSPARI [Suspect]
     Active Substance: SPARSENTAN
     Indication: IgA nephropathy
     Dosage: 200 MG DAYS 1-14
     Route: 048
     Dates: start: 20250719
  2. FILSPARI [Suspect]
     Active Substance: SPARSENTAN
     Dosage: 400 MG DAYS 15-30
     Route: 048
     Dates: start: 20250802, end: 20250823
  3. FILSPARI [Suspect]
     Active Substance: SPARSENTAN
     Route: 048
     Dates: start: 20250825, end: 20250827
  4. FILSPARI [Suspect]
     Active Substance: SPARSENTAN
     Route: 048
     Dates: start: 20250902, end: 20250904
  5. FILSPARI [Suspect]
     Active Substance: SPARSENTAN
     Route: 048
     Dates: start: 20251003, end: 20251005
  6. FILSPARI [Suspect]
     Active Substance: SPARSENTAN
     Route: 048
     Dates: start: 20251007, end: 20251009
  7. TARPEYO [Suspect]
     Active Substance: BUDESONIDE
     Indication: Product used for unknown indication
     Dates: start: 202507
  8. ELIQUIS [Concomitant]
     Active Substance: APIXABAN
  9. FUROSEMIDE [Concomitant]
     Active Substance: FUROSEMIDE
  10. METOPROLOL [Concomitant]
     Active Substance: METOPROLOL

REACTIONS (16)
  - Dyspnoea [Recovered/Resolved]
  - Fatigue [Recovered/Resolved]
  - Feeling abnormal [Recovered/Resolved]
  - Oedema peripheral [Recovering/Resolving]
  - Disorientation [Recovered/Resolved]
  - Dizziness [Recovering/Resolving]
  - Atrial fibrillation [Unknown]
  - Balance disorder [Unknown]
  - Vertigo [None]
  - Limb discomfort [None]
  - Presyncope [None]
  - Off label use [Unknown]
  - Weight increased [Unknown]
  - Constipation [None]
  - Fluid retention [Unknown]
  - Hypotension [Unknown]

NARRATIVE: CASE EVENT DATE: 20250801
